FAERS Safety Report 9587745 (Version 2)
Quarter: 2013Q4

REPORT INFORMATION
  Report Type: Spontaneous
  Country: US (occurrence: US)
  Receive Date: 20131003
  Receipt Date: 20131003
  Transmission Date: 20140711
  Serious: No
  Sender: FDA-Public Use
  Company Number: US-COVIDIEN/TYCO HEALTHCARE/MALLINCKRODT-T201301796

PATIENT
  Age: 90 Year
  Sex: Female
  Weight: 68.27 kg

DRUGS (3)
  1. EXALGO EXTENDED RELEASE [Suspect]
     Indication: HEADACHE
     Dosage: 8 MG, QD
     Route: 048
     Dates: start: 20130425, end: 20130429
  2. MELOXICAM [Concomitant]
     Indication: ARTHRITIS
     Dosage: 15 MG, QD
     Route: 048
  3. VICODIN [Concomitant]
     Indication: PAIN
     Dosage: 1-2 TABLETS, Q 6-8 H, PRN
     Route: 048

REACTIONS (2)
  - Wheezing [Not Recovered/Not Resolved]
  - Drug ineffective [Recovering/Resolving]
